FAERS Safety Report 5017701-7 (Version None)
Quarter: 2006Q2

REPORT INFORMATION
  Report Type: 
  Country: None (occurrence: None)
  Receive Date: 20060525
  Receipt Date: 20060512
  Transmission Date: 20061013
  Serious: Yes (Hospitalization)
  Sender: FDA-Public Use
  Company Number: 230001E05USA

PATIENT
  Age: 44 Year
  Sex: Female

DRUGS (6)
  1. REBIF [Suspect]
     Indication: RELAPSING-REMITTING MULTIPLE SCLEROSIS
     Dosage: 44 + 22 + 8.8MCG, 3 IN 1 WEEKS, SUBCUTANEOUS - SEE IMAGE
     Route: 058
     Dates: start: 20041214, end: 20041224
  2. REBIF [Suspect]
     Indication: RELAPSING-REMITTING MULTIPLE SCLEROSIS
     Dosage: 44 + 22 + 8.8MCG, 3 IN 1 WEEKS, SUBCUTANEOUS - SEE IMAGE
     Route: 058
     Dates: start: 20041227, end: 20050107
  3. REBIF [Suspect]
     Indication: RELAPSING-REMITTING MULTIPLE SCLEROSIS
     Dosage: 44 + 22 + 8.8MCG, 3 IN 1 WEEKS, SUBCUTANEOUS - SEE IMAGE
     Route: 058
     Dates: start: 20050110
  4. LEVOTHYROXINE SODIUM [Concomitant]
  5. SALBUTAMOL SULFATE [Concomitant]
  6. VICODIN [Concomitant]

REACTIONS (15)
  - ANXIETY [None]
  - ANXIETY DISORDER [None]
  - DELUSIONAL DISORDER, PERSECUTORY TYPE [None]
  - DEPRESSED MOOD [None]
  - DISTURBANCE IN SOCIAL BEHAVIOUR [None]
  - DRUG ABUSER [None]
  - EMOTIONAL DISTRESS [None]
  - FEAR [None]
  - IMPAIRED WORK ABILITY [None]
  - JUDGEMENT IMPAIRED [None]
  - MENTAL IMPAIRMENT [None]
  - PERSECUTORY DELUSION [None]
  - STOMACH DISCOMFORT [None]
  - THINKING ABNORMAL [None]
  - WEIGHT INCREASED [None]
